FAERS Safety Report 21409739 (Version 4)
Quarter: 2022Q4

REPORT INFORMATION
  Report Type: Spontaneous
  Country: IT (occurrence: IT)
  Receive Date: 20221005
  Receipt Date: 20221205
  Transmission Date: 20230113
  Serious: Yes (Hospitalization, Disabling, Other)
  Sender: FDA-Public Use
  Company Number: IT-CELLTRION HEALTHCARE HUNGARY KFT-2022IT014989

PATIENT
  Age: 58 Year
  Sex: Male

DRUGS (10)
  1. LEUPROLIDE ACETATE [Suspect]
     Active Substance: LEUPROLIDE ACETATE
     Indication: Extramammary Paget^s disease
     Dosage: 11.25 MILLIGRAM
     Route: 030
     Dates: start: 201906, end: 201908
  2. GEMCITABINE [Suspect]
     Active Substance: GEMCITABINE
     Indication: Extramammary Paget^s disease
     Route: 065
     Dates: start: 201910
  3. GEMCITABINE [Suspect]
     Active Substance: GEMCITABINE
     Indication: Extramammary Paget^s disease
     Route: 065
     Dates: start: 201908, end: 2019
  4. PACLITAXEL [Suspect]
     Active Substance: PACLITAXEL
     Indication: Extramammary Paget^s disease
     Route: 065
     Dates: end: 201605
  5. CARBOPLATIN [Suspect]
     Active Substance: CARBOPLATIN
     Indication: Extramammary Paget^s disease
     Route: 065
     Dates: start: 201601, end: 201605
  6. TRASTUZUMAB [Suspect]
     Active Substance: TRASTUZUMAB
     Indication: Extramammary Paget^s disease
     Route: 042
     Dates: end: 201910
  7. TRASTUZUMAB [Suspect]
     Active Substance: TRASTUZUMAB
     Indication: Extramammary Paget^s disease
     Route: 042
     Dates: start: 201601, end: 2019
  8. VINORELBINE [Suspect]
     Active Substance: VINORELBINE TARTRATE
     Indication: Extramammary Paget^s disease
     Route: 048
     Dates: start: 201901, end: 201905
  9. VINORELBINE [Suspect]
     Active Substance: VINORELBINE TARTRATE
     Indication: Extramammary Paget^s disease
     Route: 048
     Dates: start: 201808
  10. BICALUTAMIDE [Suspect]
     Active Substance: BICALUTAMIDE
     Indication: Extramammary Paget^s disease
     Route: 048
     Dates: start: 201906, end: 201908

REACTIONS (11)
  - Mobility decreased [Unknown]
  - Asthenia [Unknown]
  - Febrile neutropenia [Unknown]
  - Disease progression [Not Recovered/Not Resolved]
  - Off label use [Recovered/Resolved]
  - Fatigue [Unknown]
  - Drug ineffective for unapproved indication [Recovered/Resolved]
  - Anaemia [Unknown]
  - Gait disturbance [Unknown]
  - Drug intolerance [Unknown]
  - Extramammary Paget^s disease [Unknown]

NARRATIVE: CASE EVENT DATE: 20190601
